FAERS Safety Report 8764877 (Version 2)
Quarter: 2013Q4

REPORT INFORMATION
  Report Type: Spontaneous
  Country: US (occurrence: US)
  Receive Date: 20120901
  Receipt Date: 20131101
  Transmission Date: 20140711
  Serious: No
  Sender: FDA-Public Use
  Company Number: US-009507513-1208USA007340

PATIENT
  Sex: Male

DRUGS (2)
  1. PEGINTRON [Suspect]
     Indication: HEPATITIS C
     Dosage: 150 MG / 0.5 ML, QW
     Route: 058
     Dates: start: 201101
  2. RIBAPAK [Suspect]
     Indication: HEPATITIS C
     Dosage: 600 MG 1 TABLET TWICE A DAY

REACTIONS (1)
  - Depression [Unknown]
